FAERS Safety Report 7240692-5 (Version None)
Quarter: 2011Q1

REPORT INFORMATION
  Report Type: 
  Country: None (occurrence: None)
  Receive Date: 20110124
  Receipt Date: 20100430
  Transmission Date: 20110831
  Serious: No
  Sender: FDA-Public Use
  Company Number: US-KINGPHARMUSA00001-K201000528

PATIENT
  Age: 29 Year
  Sex: Female
  Weight: 77.098 kg

DRUGS (1)
  1. EPIPEN JR. [Suspect]
     Dosage: 0.15 MG, SINGLE
     Dates: start: 20100430, end: 20100430

REACTIONS (7)
  - ACCIDENTAL EXPOSURE [None]
  - INJECTION SITE HAEMORRHAGE [None]
  - PALPITATIONS [None]
  - INJECTION SITE PAIN [None]
  - TREMOR [None]
  - EXPIRED DRUG ADMINISTERED [None]
  - INJECTION SITE PARAESTHESIA [None]
